FAERS Safety Report 6873104-1 (Version None)
Quarter: 2010Q3

REPORT INFORMATION
  Report Type: 
  Country: None (occurrence: None)
  Receive Date: 20100723
  Receipt Date: 20090408
  Transmission Date: 20110219
  Serious: Yes (Hospitalization, Other)
  Sender: FDA-Public Use
  Company Number: US-PFIZER INC-2008086951

PATIENT
  Sex: Male
  Weight: 72.6 kg

DRUGS (2)
  1. CHANTIX [Suspect]
     Indication: SMOKING CESSATION THERAPY
     Dates: start: 20080101, end: 20081013
  2. PROVIGIL [Concomitant]
     Indication: NARCOLEPSY

REACTIONS (3)
  - FLATULENCE [None]
  - PSYCHOTIC DISORDER [None]
  - VOMITING [None]
